FAERS Safety Report 8589660-1 (Version None)
Quarter: 2012Q3

REPORT INFORMATION
  Report Type: 
  Country: None (occurrence: None)
  Receive Date: 20120813
  Receipt Date: 20120806
  Transmission Date: 20120928
  Serious: Yes (Hospitalization, Other)
  Sender: FDA-Public Use
  Company Number: GB-ROCHE-1091885

PATIENT
  Sex: Female
  Weight: 57 kg

DRUGS (11)
  1. LANSOPRAZOLE [Concomitant]
     Route: 048
  2. SENNA [Concomitant]
     Route: 048
  3. ATORVASTATIN [Concomitant]
     Route: 048
  4. PREGABALIN [Concomitant]
     Route: 048
  5. BISOPROLOL [Concomitant]
     Route: 048
  6. METANIUM OINTMENT [Concomitant]
     Dosage: AS REQUIRED
     Route: 061
  7. MABTHERA [Suspect]
     Indication: RHEUMATOID ARTHRITIS
     Dates: start: 20100514
  8. PREDNISOLONE [Concomitant]
  9. ACETAMINOPHEN [Concomitant]
     Dosage: 2 TABLETS EVERY 4-6 HOURS AS REQUIRED
     Route: 048
  10. AMLODIPINE [Concomitant]
     Dosage: 1 TABLET IN THE MORNING
     Route: 048
  11. ASPIRIN [Concomitant]
     Dosage: IN THE MORNING
     Route: 048

REACTIONS (12)
  - CEREBROVASCULAR ACCIDENT [None]
  - ACUTE MYOCARDIAL INFARCTION [None]
  - LACERATION [None]
  - NEUTROPENIA [None]
  - CELLULITIS [None]
  - PERIPHERAL SENSORY NEUROPATHY [None]
  - DIARRHOEA [None]
  - SEPSIS [None]
  - SKIN ULCER [None]
  - PNEUMONIA [None]
  - VASCULITIS [None]
  - LYMPHOCYTOSIS [None]
